FAERS Safety Report 4578283-7 (Version None)
Quarter: 2005Q1

REPORT INFORMATION
  Report Type: 
  Country: None (occurrence: None)
  Receive Date: 20050204
  Receipt Date: 20050204
  Transmission Date: 20050727
  Serious: No
  Sender: FDA-Public Use
  Company Number: None

PATIENT
  Age: 40 Year
  Sex: Female

DRUGS (1)
  1. CEPHALEXIN [Suspect]
     Indication: INFECTION
     Dosage: 500 MG TID PO
     Route: 048
     Dates: start: 20041015, end: 20041020

REACTIONS (3)
  - RASH GENERALISED [None]
  - RASH PRURITIC [None]
  - SWELLING FACE [None]
